FAERS Safety Report 6226512-6 (Version None)
Quarter: 2009Q2

REPORT INFORMATION
  Report Type: 
  Country: None (occurrence: None)
  Receive Date: 20090612
  Receipt Date: 20090529
  Transmission Date: 20091009
  Serious: No
  Sender: FDA-Public Use
  Company Number: US-ABBOTT-09P-163-0574028-00

PATIENT
  Sex: Female
  Weight: 61.29 kg

DRUGS (2)
  1. HUMIRA [Suspect]
     Indication: CROHN'S DISEASE
     Route: 058
     Dates: start: 20070301
  2. CYMBALTA [Suspect]
     Indication: DEPRESSION
     Route: 048
     Dates: end: 20090427

REACTIONS (7)
  - CYSTITIS [None]
  - FUNGAL INFECTION [None]
  - NO THERAPEUTIC RESPONSE [None]
  - PAPILLOMA VIRAL INFECTION [None]
  - PHARYNGITIS STREPTOCOCCAL [None]
  - SENSORY LOSS [None]
  - SINUS CONGESTION [None]
